FAERS Safety Report 8159839-1 (Version None)
Quarter: 2012Q1

REPORT INFORMATION
  Report Type: 
  Country: None (occurrence: None)
  Receive Date: 20120223
  Receipt Date: 20120214
  Transmission Date: 20120608
  Serious: Yes (Hospitalization)
  Sender: FDA-Public Use
  Company Number: US-JNJFOC-20111201403

PATIENT
  Sex: Female
  Weight: 108.86 kg

DRUGS (11)
  1. XARELTO [Suspect]
     Indication: KNEE ARTHROPLASTY
     Route: 048
     Dates: start: 20110921, end: 20111001
  2. ELOZELL [Concomitant]
     Indication: DIURETIC THERAPY
  3. VICODIN [Concomitant]
     Indication: PAIN
  4. METFORMIN HCL [Concomitant]
     Indication: DIABETES MELLITUS
  5. GLYBURIDE [Concomitant]
     Indication: DIABETES MELLITUS
  6. ASPIRIN [Concomitant]
     Indication: ANTICOAGULANT THERAPY
  7. AMLODIPINE [Concomitant]
  8. POTASSIUM CHLORIDE [Concomitant]
     Indication: MINERAL SUPPLEMENTATION
  9. OSTEO BI-FLEX [Concomitant]
  10. CALCIUM [Concomitant]
     Indication: MINERAL SUPPLEMENTATION
  11. ZOLOFT [Concomitant]
     Indication: ANTIDEPRESSANT THERAPY

REACTIONS (2)
  - DEEP VEIN THROMBOSIS [None]
  - PULMONARY EMBOLISM [None]
